FAERS Safety Report 8157616-9 (Version None)
Quarter: 2012Q1

REPORT INFORMATION
  Report Type: 
  Country: None (occurrence: None)
  Receive Date: 20120222
  Receipt Date: 20120215
  Transmission Date: 20120608
  Serious: Yes (Death, Life-Threatening, Hospitalization, Other)
  Sender: FDA-Public Use
  Company Number: FR-BAXTER-2011BH038584

PATIENT
  Age: 65 Year
  Sex: Female
  Weight: 59 kg

DRUGS (13)
  1. EMEND [Concomitant]
     Indication: PRODUCT USED FOR UNKNOWN INDICATION
     Route: 065
     Dates: start: 20111013, end: 20111013
  2. ACETAMINOPHEN [Concomitant]
     Indication: PRODUCT USED FOR UNKNOWN INDICATION
     Route: 065
  3. ADRIAMYCIN PFS [Concomitant]
     Indication: ENDOMETRIAL SARCOMA
     Route: 042
     Dates: start: 20111013, end: 20111013
  4. ESOMEPRAZOLE [Concomitant]
     Indication: PRODUCT USED FOR UNKNOWN INDICATION
     Route: 065
  5. SOLU-MEDROL [Concomitant]
     Indication: ANTIEMETIC SUPPORTIVE CARE
     Route: 065
     Dates: start: 20111014, end: 20111014
  6. ACUPAN [Concomitant]
     Indication: PRODUCT USED FOR UNKNOWN INDICATION
     Route: 065
  7. PRIMPERAN TAB [Concomitant]
     Indication: PRODUCT USED FOR UNKNOWN INDICATION
     Route: 065
     Dates: start: 20111013
  8. ZOFRAN [Concomitant]
     Indication: ANTIEMETIC SUPPORTIVE CARE
     Route: 065
     Dates: start: 20111013
  9. EMEND [Concomitant]
     Route: 065
     Dates: start: 20111014, end: 20111015
  10. UROMITEXAN [Concomitant]
     Indication: PRODUCT USED FOR UNKNOWN INDICATION
     Route: 042
     Dates: start: 20111013, end: 20111015
  11. ADRIAMYCIN PFS [Concomitant]
     Route: 042
     Dates: start: 20110919, end: 20110919
  12. IFOSFAMIDE [Suspect]
     Indication: ENDOMETRIAL SARCOMA
     Route: 042
     Dates: start: 20111013, end: 20111015
  13. XANAX [Concomitant]
     Indication: PRODUCT USED FOR UNKNOWN INDICATION
     Route: 065
     Dates: start: 20111013

REACTIONS (4)
  - APLASIA [None]
  - MUCOSAL INFLAMMATION [None]
  - ENCEPHALOPATHY [None]
  - SEPTIC SHOCK [None]
